FAERS Safety Report 17467553 (Version 2)
Quarter: 2020Q3

REPORT INFORMATION
  Report Type: Spontaneous
  Country: US (occurrence: US)
  Receive Date: 20200227
  Receipt Date: 20200929
  Transmission Date: 20201102
  Serious: Yes (Other)
  Sender: FDA-Public Use
  Company Number: US-PFIZER INC-2019313425

PATIENT
  Age: 65 Year
  Sex: Female
  Weight: 58.51 kg

DRUGS (4)
  1. TOVIAZ [Suspect]
     Active Substance: FESOTERODINE FUMARATE
     Indication: MICTURITION URGENCY
  2. TOVIAZ [Suspect]
     Active Substance: FESOTERODINE FUMARATE
     Indication: NOCTURIA
  3. TOVIAZ [Suspect]
     Active Substance: FESOTERODINE FUMARATE
     Indication: URINARY RETENTION
     Dosage: 8 MG, 1X/DAY
     Route: 048
     Dates: start: 20200923
  4. TOVIAZ [Suspect]
     Active Substance: FESOTERODINE FUMARATE
     Indication: URGE INCONTINENCE
     Dosage: 4 MG, 1X/DAY (4MG TABLET BY MOUTH ONCE DAILY)
     Route: 048
     Dates: start: 20190627

REACTIONS (2)
  - Fall [Unknown]
  - Hip fracture [Unknown]
